FAERS Safety Report 15137179 (Version 1)
Quarter: 2018Q3

REPORT INFORMATION
  Report Type: Spontaneous
  Country: US (occurrence: US)
  Receive Date: 20180712
  Receipt Date: 20180712
  Transmission Date: 20181010
  Serious: No
  Sender: FDA-Public Use
  Company Number: US-BEH-2018092663

PATIENT
  Age: 56 Year
  Sex: Female
  Weight: 68.27 kg

DRUGS (10)
  1. VITAMIN D3 [Concomitant]
     Active Substance: CHOLECALCIFEROL
  2. DEXILANT [Concomitant]
     Active Substance: DEXLANSOPRAZOLE
  3. HAEGARDA [Suspect]
     Active Substance: HUMAN C1-ESTERASE INHIBITOR
     Indication: HEREDITARY ANGIOEDEMA
     Dosage: 4000 IU, EVERY 3 DAYS
     Route: 058
     Dates: start: 20171220
  4. GLUCOSAMINE [Concomitant]
     Active Substance: GLUCOSAMINE
  5. EPINEPHRINE. [Concomitant]
     Active Substance: EPINEPHRINE
  6. VITAMIN B [Concomitant]
     Active Substance: VITAMIN B
  7. TYLENOL [Concomitant]
     Active Substance: ACETAMINOPHEN
  8. PAXIL [Concomitant]
     Active Substance: PAROXETINE HYDROCHLORIDE
  9. FIRAZYR [Concomitant]
     Active Substance: ICATIBANT ACETATE
  10. HAEGARDA [Suspect]
     Active Substance: HUMAN C1-ESTERASE INHIBITOR
     Indication: PROPHYLAXIS
     Dosage: 4000 IU, TOT
     Route: 058

REACTIONS (1)
  - Tooth infection [Unknown]

NARRATIVE: CASE EVENT DATE: 201807
